FAERS Safety Report 10083297 (Version 1)
Quarter: 2014Q2

REPORT INFORMATION
  Report Type: Spontaneous
  Country: US (occurrence: None)
  Receive Date: 20140416
  Receipt Date: 20140416
  Transmission Date: 20141212
  Serious: Yes (Life-Threatening, Hospitalization)
  Sender: FDA-Public Use
  Company Number: None

PATIENT
  Age: 58 Year
  Sex: Female
  Weight: 87 kg

DRUGS (19)
  1. TECFIDERA 120 MG BIOGEN [Suspect]
     Indication: RELAPSING-REMITTING MULTIPLE SCLEROSIS
     Route: 048
     Dates: start: 20140124, end: 20140214
  2. LEVAQUIN [Concomitant]
  3. TOPIRAMATE (TOPAMAX) [Concomitant]
  4. BACLOFEN (BACLOFEN) [Concomitant]
  5. TIZANIDINE (TIZANIDINE) [Concomitant]
  6. LISINOPRIL (LISINOPRIL) [Concomitant]
  7. CLONAZEPAM (KLONOPIN) [Concomitant]
  8. SERTRALINE (SERTRALINE) [Concomitant]
  9. ZOLPIDEM (AMBIEN) [Concomitant]
  10. AMITRIPTYLINE (AMITRIPTYLINE) [Concomitant]
  11. ALBUTEROL (ALBUTEROL HFA) [Concomitant]
  12. ESOMEPRAZOLE (NEXIUM) [Concomitant]
  13. ACETAMINOPHEN-OXYCODONE (PERCOCET-5/325) [Concomitant]
  14. FOLIC ACID (FOLIC ACID) [Concomitant]
  15. APAP/ASA/CAFFEINE (EXCEDRIN MIGRAINE) [Concomitant]
  16. CYANOCOBALAMIN (VITAMIN B-12) [Concomitant]
  17. CHOLECALCIFEROL (VITAMIN D3) [Concomitant]
  18. ZINC GLUCONATE (ZINC GLUCONATE) [Concomitant]
  19. ASCORBIC ACID (ASCORBIC ACID) [Concomitant]

REACTIONS (6)
  - Nausea [None]
  - Vomiting [None]
  - Dyspnoea [None]
  - Acute hepatic failure [None]
  - Cardiac failure acute [None]
  - Pulmonary congestion [None]
